FAERS Safety Report 16682531 (Version 1)
Quarter: 2019Q3

REPORT INFORMATION
  Report Type: Spontaneous
  Country: US (occurrence: US)
  Receive Date: 20190808
  Receipt Date: 20190808
  Transmission Date: 20191004
  Serious: No
  Sender: FDA-Public Use
  Company Number: US-PFIZER INC-2019335474

PATIENT
  Age: 51 Year
  Sex: Female
  Weight: 80.27 kg

DRUGS (5)
  1. SOMAVERT [Suspect]
     Active Substance: PEGVISOMANT
     Indication: ACROMEGALY
     Dosage: 10 MG, DAILY
  2. SOMAVERT [Suspect]
     Active Substance: PEGVISOMANT
     Indication: GIGANTISM
  3. ORTHO-NOVUM 0.5 [Concomitant]
     Dosage: UNK(1/35)
  4. NATURE-THROID [Concomitant]
     Active Substance: THYROID, PORCINE
     Dosage: 325 MG, UNK
  5. DOSTINEX [Concomitant]
     Active Substance: CABERGOLINE
     Dosage: UNK

REACTIONS (1)
  - Injection site nodule [Unknown]
